FAERS Safety Report 13013007 (Version 1)
Quarter: 2016Q4

REPORT INFORMATION
  Report Type: Spontaneous
  Country: US (occurrence: US)
  Receive Date: 20161209
  Receipt Date: 20161209
  Transmission Date: 20170207
  Serious: No
  Sender: FDA-Public Use
  Company Number: US-BAYER-2016-229197

PATIENT
  Age: 65 Year
  Sex: Male
  Weight: 77.1 kg

DRUGS (4)
  1. ALEVE [Suspect]
     Active Substance: NAPROXEN SODIUM
     Indication: PAIN
     Dosage: 1 OR 2 CAPLET
     Route: 048
     Dates: start: 201611, end: 20161202
  2. ACETAMINOPHEN. [Concomitant]
     Active Substance: ACETAMINOPHEN
  3. ASPIRIN [ACETYLSALICYLIC ACID] [Concomitant]
  4. DIGITEK [Concomitant]
     Active Substance: DIGOXIN

REACTIONS (2)
  - Blood pressure decreased [Not Recovered/Not Resolved]
  - Product use issue [Unknown]

NARRATIVE: CASE EVENT DATE: 201611
